FAERS Safety Report 22027143 (Version 1)
Quarter: 2023Q1

REPORT INFORMATION
  Report Type: Spontaneous
  Country: FR (occurrence: FR)
  Receive Date: 20230223
  Receipt Date: 20230223
  Transmission Date: 20230418
  Serious: Yes (Hospitalization, Other)
  Sender: FDA-Public Use
  Company Number: None

PATIENT
  Age: 73 Year
  Sex: Male

DRUGS (2)
  1. RIFAMPIN [Suspect]
     Active Substance: RIFAMPIN
     Indication: Osteomyelitis
     Dosage: 1200 MG, QD
     Route: 048
     Dates: start: 20221206, end: 20230101
  2. OFLOXACIN [Concomitant]
     Active Substance: OFLOXACIN
     Dosage: 600 MG, QD
     Route: 048
     Dates: start: 20221206, end: 20230101

REACTIONS (1)
  - Henoch-Schonlein purpura [Recovering/Resolving]

NARRATIVE: CASE EVENT DATE: 20230101
